FAERS Safety Report 5257645-9 (Version None)
Quarter: 2007Q1

REPORT INFORMATION
  Report Type: 
  Country: None (occurrence: None)
  Receive Date: 20070307
  Receipt Date: 20070223
  Transmission Date: 20070707
  Serious: Yes (Life-Threatening)
  Sender: FDA-Public Use
  Company Number: US-SANOFI-SYNTHELABO-A03200701644

PATIENT
  Age: 62 Year
  Sex: Male

DRUGS (1)
  1. AMBIEN [Suspect]
     Indication: INSOMNIA
     Dosage: UNK
     Route: 048
     Dates: start: 20070101, end: 20070101

REACTIONS (4)
  - FALL [None]
  - HAEMORRHAGE [None]
  - SKIN LACERATION [None]
  - SLEEP WALKING [None]
